FAERS Safety Report 5095347-2 (Version None)
Quarter: 2006Q3

REPORT INFORMATION
  Report Type: 
  Country: None (occurrence: None)
  Receive Date: 20060731
  Receipt Date: 20060427
  Transmission Date: 20061208
  Serious: No
  Sender: FDA-Public Use
  Company Number: 2006PV012820

PATIENT
  Age: 57 Year
  Sex: Female
  Weight: 90.2658 kg

DRUGS (2)
  1. BYETTA [Suspect]
     Dosage: 10 + 5 MCG; BID; SC - SEE IMAGE
     Route: 058
     Dates: start: 20060124, end: 20060224
  2. BYETTA [Suspect]
     Dosage: 10 + 5 MCG; BID; SC - SEE IMAGE
     Route: 058
     Dates: start: 20060225

REACTIONS (2)
  - CYSTOCELE [None]
  - VAGINAL BURNING SENSATION [None]
